FAERS Safety Report 20557599 (Version 4)
Quarter: 2024Q4

REPORT INFORMATION
  Report Type: Spontaneous
  Country: US (occurrence: US)
  Receive Date: 20220307
  Receipt Date: 20241219
  Transmission Date: 20250114
  Serious: Yes (Hospitalization, Other)
  Sender: ROCHE
  Company Number: US-ROCHE-3036922

PATIENT
  Age: 67 Year
  Sex: Female
  Weight: 81.65 kg

DRUGS (3)
  1. ALECENSA [Suspect]
     Active Substance: ALECTINIB HYDROCHLORIDE
     Indication: Lung neoplasm malignant
     Dosage: FOUR 150MG CAPSULES IN MORNING AND AT NIGHT
     Route: 048
     Dates: start: 20220211
  2. ALECENSA [Suspect]
     Active Substance: ALECTINIB HYDROCHLORIDE
     Route: 048
  3. ELIQUIS [Concomitant]
     Active Substance: APIXABAN
     Indication: Thrombosis
     Route: 048

REACTIONS (12)
  - Peripheral swelling [Not Recovered/Not Resolved]
  - Rash [Not Recovered/Not Resolved]
  - Weight increased [Not Recovered/Not Resolved]
  - Pulmonary thrombosis [Not Recovered/Not Resolved]
  - Thrombosis [Not Recovered/Not Resolved]
  - Dyspnoea [Not Recovered/Not Resolved]
  - Fluid retention [Unknown]
  - Vomiting [Unknown]
  - Haemoptysis [Unknown]
  - Fatigue [Unknown]
  - Myalgia [Unknown]
  - Blood creatine phosphokinase increased [Unknown]

NARRATIVE: CASE EVENT DATE: 20220211
